FAERS Safety Report 9633169 (Version 1)
Quarter: 2013Q4

REPORT INFORMATION
  Report Type: Spontaneous
  Country: FR (occurrence: FR)
  Receive Date: 20131020
  Receipt Date: 20131020
  Transmission Date: 20140711
  Serious: Yes (Life-Threatening)
  Sender: FDA-Public Use
  Company Number: FR-MYLANLABS-2013S1022387

PATIENT
  Age: 12 Year
  Sex: Male

DRUGS (1)
  1. VANCOMYCINE [Suspect]
     Indication: MENINGIOMA
     Route: 042
     Dates: start: 20130710, end: 20130710

REACTIONS (3)
  - Incorrect drug administration rate [Recovered/Resolved]
  - Red man syndrome [Recovered/Resolved]
  - Hypotension [Recovered/Resolved]
